FAERS Safety Report 16005457 (Version 2)
Quarter: 2019Q2

REPORT INFORMATION
  Report Type: Spontaneous
  Country: JP (occurrence: JP)
  Receive Date: 20190226
  Receipt Date: 20190417
  Transmission Date: 20190711
  Serious: Yes (Death, Other)
  Sender: FDA-Public Use
  Company Number: JP-BRISTOL-MYERS SQUIBB COMPANY-BMS-2019-018327

PATIENT
  Sex: Female
  Weight: 48 kg

DRUGS (7)
  1. FENTOS [Concomitant]
     Active Substance: FENTANYL
     Indication: CANCER PAIN
     Dosage: 4 MILLIGRAM, QD
     Route: 062
     Dates: end: 20190218
  2. MAGMITT [Concomitant]
     Active Substance: MAGNESIUM OXIDE
     Indication: CONSTIPATION
     Dosage: 500 MILLIGRAM, Q8H
     Route: 048
     Dates: end: 20190218
  3. OPDIVO [Suspect]
     Active Substance: NIVOLUMAB
     Indication: HEAD AND NECK CANCER METASTATIC
     Dosage: 240 MILLIGRAM
     Route: 041
     Dates: start: 20190213, end: 20190213
  4. LANSOPRAZOLE. [Concomitant]
     Active Substance: LANSOPRAZOLE
     Indication: CHRONIC GASTRITIS
     Dosage: 15 MILLIGRAM, QD
     Route: 048
     Dates: end: 20190218
  5. DECADRON [Concomitant]
     Active Substance: DEXAMETHASONE
     Indication: ADRENAL INSUFFICIENCY
     Dosage: 0.5 MILLIGRAM, Q8H
     Route: 048
     Dates: end: 20190218
  6. RACOL                              /07499801/ [Concomitant]
     Indication: MALNUTRITION
     Dosage: 400 MILLILITER, Q8H
     Route: 048
     Dates: end: 20190218
  7. CARBOCISTEINE [Concomitant]
     Active Substance: CARBOCYSTEINE
     Indication: BRONCHITIS CHRONIC
     Dosage: 500 MILLIGRAM, Q8H
     Route: 048
     Dates: end: 20190218

REACTIONS (2)
  - Diarrhoea [Unknown]
  - Pharyngeal haemorrhage [Fatal]
